FAERS Safety Report 9201224 (Version 1)
Quarter: 2013Q2

REPORT INFORMATION
  Report Type: Spontaneous
  Country: US (occurrence: US)
  Receive Date: 20130401
  Receipt Date: 20130401
  Transmission Date: 20140414
  Serious: Yes (Other)
  Sender: FDA-Public Use
  Company Number: US-JNJFOC-20130314249

PATIENT
  Sex: Female

DRUGS (2)
  1. TERCONAZOLE [Suspect]
     Indication: VULVAL DISORDER
     Route: 067
  2. TERCONAZOLE [Suspect]
     Indication: VULVAL DISORDER
     Route: 067

REACTIONS (1)
  - Dermatitis contact [Unknown]
